FAERS Safety Report 16973114 (Version 1)
Quarter: 2019Q4

REPORT INFORMATION
  Report Type: Spontaneous
  Country: CA (occurrence: CA)
  Receive Date: 20191030
  Receipt Date: 20191030
  Transmission Date: 20200122
  Serious: Yes (Hospitalization, Other)
  Sender: FDA-Public Use
  Company Number: CA-TEVA-2019-CA-1128048

PATIENT
  Age: 62 Year
  Sex: Female

DRUGS (20)
  1. OMALIZUMAB. [Suspect]
     Active Substance: OMALIZUMAB
     Route: 058
  2. PULMICORT TURBUHALER [Concomitant]
     Active Substance: BUDESONIDE
     Indication: ASTHMA
     Dosage: 4 DOSAGE FORMS DAILY;
     Route: 050
  3. ASA [Concomitant]
     Active Substance: ASPIRIN
     Indication: THROMBOSIS
     Route: 048
  4. VENTOLIN [Concomitant]
     Active Substance: ALBUTEROL SULFATE
     Indication: PRODUCT USED FOR UNKNOWN INDICATION
     Route: 065
  5. SYMBICORT [Concomitant]
     Active Substance: BUDESONIDE\FORMOTEROL FUMARATE DIHYDRATE
     Indication: ASTHMA
     Dosage: 6 MICROGRAM DAILY;
     Route: 050
  6. RAMIPRIL. [Concomitant]
     Active Substance: RAMIPRIL
     Indication: PRODUCT USED FOR UNKNOWN INDICATION
     Route: 065
  7. OMNARIS [Concomitant]
     Active Substance: CICLESONIDE
     Indication: HYPERSENSITIVITY
     Dosage: 2 DOSAGE FORMS DAILY;
     Route: 050
  8. ASA [Concomitant]
     Active Substance: ASPIRIN
     Indication: PROPHYLAXIS
  9. SYNTHROID [Concomitant]
     Active Substance: LEVOTHYROXINE SODIUM
     Indication: HYPOTHYROIDISM
     Dosage: 1 DOSAGE FORMS DAILY;
     Route: 065
  10. SYMBICORT [Concomitant]
     Active Substance: BUDESONIDE\FORMOTEROL FUMARATE DIHYDRATE
     Indication: PRODUCT USED FOR UNKNOWN INDICATION
     Dosage: 3 DOSAGE FORMS DAILY;
     Route: 065
  11. PREDNISONE. [Concomitant]
     Active Substance: PREDNISONE
     Indication: ASTHMA
     Route: 048
  12. HYDROCORTISONE. [Concomitant]
     Active Substance: HYDROCORTISONE
     Indication: PRODUCT USED FOR UNKNOWN INDICATION
     Dosage: 1 DOSAGE FORMS DAILY;
     Route: 065
  13. OMALIZUMAB. [Suspect]
     Active Substance: OMALIZUMAB
     Route: 058
  14. OMNARIS [Concomitant]
     Active Substance: CICLESONIDE
     Indication: RHINITIS ALLERGIC
     Route: 065
  15. LORATADINE. [Concomitant]
     Active Substance: LORATADINE
     Indication: RHINITIS ALLERGIC
     Dosage: 1 DOSAGE FORMS DAILY;
     Route: 048
  16. MONTELUKAST [Suspect]
     Active Substance: MONTELUKAST SODIUM
     Indication: ASTHMA
     Dosage: 1 DOSAGE FORMS DAILY;
     Route: 048
  17. OMALIZUMAB. [Suspect]
     Active Substance: OMALIZUMAB
     Indication: ASTHMA
     Route: 058
  18. LORATADINE. [Concomitant]
     Active Substance: LORATADINE
     Indication: HYPERSENSITIVITY
  19. VENTOLIN [Concomitant]
     Active Substance: ALBUTEROL SULFATE
     Indication: ASTHMA
     Route: 050
  20. LANSOPRAZOLE. [Concomitant]
     Active Substance: LANSOPRAZOLE
     Indication: GASTROOESOPHAGEAL REFLUX DISEASE
     Dosage: 1 DOSAGE FORMS DAILY;
     Route: 048

REACTIONS (26)
  - Face oedema [Not Recovered/Not Resolved]
  - Productive cough [Not Recovered/Not Resolved]
  - Sputum discoloured [Not Recovered/Not Resolved]
  - Asthma [Not Recovered/Not Resolved]
  - Chronic sinusitis [Not Recovered/Not Resolved]
  - Incorrect dose administered [Not Recovered/Not Resolved]
  - Pyrexia [Not Recovered/Not Resolved]
  - Secretion discharge [Not Recovered/Not Resolved]
  - Gastritis [Not Recovered/Not Resolved]
  - Malaise [Not Recovered/Not Resolved]
  - Nausea [Not Recovered/Not Resolved]
  - Product impurity [Not Recovered/Not Resolved]
  - Sensitivity to weather change [Not Recovered/Not Resolved]
  - Blood pressure systolic increased [Not Recovered/Not Resolved]
  - Drug ineffective [Not Recovered/Not Resolved]
  - Osteoporosis [Not Recovered/Not Resolved]
  - Dyspepsia [Not Recovered/Not Resolved]
  - Foot fracture [Not Recovered/Not Resolved]
  - Insomnia [Not Recovered/Not Resolved]
  - Respiratory rate increased [Not Recovered/Not Resolved]
  - Abdominal pain upper [Not Recovered/Not Resolved]
  - Bronchitis [Not Recovered/Not Resolved]
  - Headache [Not Recovered/Not Resolved]
  - Reflux gastritis [Not Recovered/Not Resolved]
  - Stress fracture [Not Recovered/Not Resolved]
  - Dyspnoea [Not Recovered/Not Resolved]
